FAERS Safety Report 8377332-8 (Version None)
Quarter: 2012Q2

REPORT INFORMATION
  Report Type: 
  Country: None (occurrence: None)
  Receive Date: 20120522
  Receipt Date: 20120515
  Transmission Date: 20120825
  Serious: Yes (Hospitalization, Other)
  Sender: FDA-Public Use
  Company Number: RU-ROCHE-1031281

PATIENT
  Sex: Male
  Weight: 67 kg

DRUGS (4)
  1. ACTEMRA [Suspect]
     Indication: JUVENILE ARTHRITIS
     Dosage: MONTHLY DOSE: 400 MG,MOST RECENT DOSE PRIOR TO SAE 10/NOV/2011
     Route: 041
     Dates: start: 20111110, end: 20111208
  2. VOLTARENE (FRANCE) [Concomitant]
     Dosage: DAILY
     Route: 048
  3. MABTHERA [Concomitant]
     Route: 042
  4. REMICADE [Concomitant]
     Route: 042

REACTIONS (4)
  - DRUG INEFFECTIVE [None]
  - EPISTAXIS [None]
  - HEADACHE [None]
  - HYPERTENSION [None]
